FAERS Safety Report 4748955-X (Version None)
Quarter: 2005Q3

REPORT INFORMATION
  Report Type: 
  Country: None (occurrence: None)
  Receive Date: 20050812
  Receipt Date: 20050504
  Transmission Date: 20060218
  Serious: Yes (Disabling)
  Sender: FDA-Public Use
  Company Number: 385178

PATIENT
  Age: 51 Year
  Sex: Female

DRUGS (6)
  1. PEGASYS [Suspect]
     Indication: HEPATITIS C
     Dosage: 180 MCG 1 PER WEEK SUBCUTANEOUS
     Route: 057
     Dates: start: 20040501, end: 20050519
  2. COPEGUS [Suspect]
     Indication: HEPATITIS C
     Dosage: 800 MG DAILY ORAL
     Route: 048
     Dates: start: 20040501, end: 20050512
  3. WELLBUTRIN (BUPROPION) [Concomitant]
  4. REMERON [Concomitant]
  5. METHADONE HCL [Concomitant]
  6. ATIVAN [Concomitant]

REACTIONS (20)
  - ANXIETY [None]
  - CONFUSIONAL STATE [None]
  - DEPRESSION [None]
  - FATIGUE [None]
  - HEADACHE [None]
  - INFLUENZA LIKE ILLNESS [None]
  - INSOMNIA [None]
  - NEUTROPENIA [None]
  - PAIN [None]
  - PHARYNGOLARYNGEAL PAIN [None]
  - PRODUCTIVE COUGH [None]
  - PSYCHOTIC DISORDER [None]
  - PYREXIA [None]
  - RED BLOOD CELL COUNT DECREASED [None]
  - SOCIAL AVOIDANT BEHAVIOUR [None]
  - SPUTUM DISCOLOURED [None]
  - SUICIDAL IDEATION [None]
  - WEIGHT INCREASED [None]
  - WHEEZING [None]
  - WHITE BLOOD CELL COUNT DECREASED [None]
